FAERS Safety Report 12225863 (Version 1)
Quarter: 2016Q1

REPORT INFORMATION
  Report Type: Not Available
  Country: None (occurrence: US)
  Receive Date: 20160331
  Receipt Date: 20160331
  Transmission Date: 20160526
  Serious: Yes (Disabling)
  Sender: FDA-Public Use
  Company Number: US-AKORN-26068

PATIENT
  Sex: Female

DRUGS (1)
  1. SUBLIMAZE [Suspect]
     Active Substance: FENTANYL CITRATE

REACTIONS (3)
  - Dyspnoea [None]
  - Chest discomfort [None]
  - Aphasia [None]
